FAERS Safety Report 6181463-0 (Version None)
Quarter: 2009Q2

REPORT INFORMATION
  Report Type: 
  Country: None (occurrence: None)
  Receive Date: 20090505
  Receipt Date: 20090505
  Transmission Date: 20091009
  Serious: No
  Sender: FDA-Public Use
  Company Number: None

PATIENT
  Sex: Male
  Weight: 83.64 kg

DRUGS (4)
  1. LISINOPRIL [Suspect]
     Dosage: 5MG TABLET 5MG QD ORAL
     Route: 048
     Dates: start: 20090129, end: 20090504
  2. CALCIUM [Concomitant]
  3. HYDROCHLOROTHIAZIDE [Concomitant]
  4. METAMUCIL [Concomitant]

REACTIONS (1)
  - OROPHARYNGEAL DISCOMFORT [None]
